FAERS Safety Report 5886684-X (Version None)
Quarter: 2008Q3

REPORT INFORMATION
  Report Type: 
  Country: None (occurrence: None)
  Receive Date: 20080917
  Receipt Date: 20080910
  Transmission Date: 20090109
  Serious: Yes (Other)
  Sender: FDA-Public Use
  Company Number: PHHY2008FR20986

PATIENT
  Sex: Female

DRUGS (3)
  1. ZOMETA [Suspect]
     Indication: BREAST CANCER METASTATIC
     Dosage: 4 MG/DAY
     Route: 042
     Dates: start: 20080805
  2. GEMZAR [Suspect]
     Indication: BREAST CANCER METASTATIC
     Dosage: 1.8 G/DAY
     Route: 042
     Dates: start: 20080805
  3. ELOXATIN [Suspect]
     Indication: BREAST CANCER METASTATIC
     Dosage: 150 MG/DAY
     Route: 042
     Dates: start: 20080806

REACTIONS (2)
  - ATAXIA [None]
  - VISION BLURRED [None]
